FAERS Safety Report 16359564 (Version 14)
Quarter: 2020Q4

REPORT INFORMATION
  Report Type: Spontaneous
  Country: DE (occurrence: DE)
  Receive Date: 20190528
  Receipt Date: 20201030
  Transmission Date: 20210113
  Serious: Yes (Hospitalization, Disabling)
  Sender: FDA-Public Use
  Company Number: DE-BIOGEN-2019BI00743340

PATIENT
  Sex: Male
  Weight: 70 kg

DRUGS (4)
  1. FAMPYRA [Suspect]
     Active Substance: DALFAMPRIDINE
     Indication: GAIT DISTURBANCE
     Route: 048
     Dates: start: 201312, end: 2018
  2. PLEGRIDY [Suspect]
     Active Substance: PEGINTERFERON BETA-1A
     Route: 058
     Dates: start: 2014, end: 2019
  3. PLEGRIDY [Suspect]
     Active Substance: PEGINTERFERON BETA-1A
     Indication: MULTIPLE SCLEROSIS
     Route: 058
     Dates: start: 2014, end: 2019
  4. TECFIDERA [Suspect]
     Active Substance: DIMETHYL FUMARATE
     Indication: MULTIPLE SCLEROSIS
     Dosage: MAINTENANCE DOSE
     Route: 048
     Dates: start: 2019

REACTIONS (4)
  - Gait disturbance [Recovered/Resolved]
  - Fatigue [Recovered/Resolved]
  - Ataxia [Not Recovered/Not Resolved]
  - Muscle spasticity [Not Recovered/Not Resolved]

NARRATIVE: CASE EVENT DATE: 2016
